FAERS Safety Report 11246264 (Version 1)
Quarter: 2015Q3

REPORT INFORMATION
  Report Type: Spontaneous
  Country: US (occurrence: None)
  Receive Date: 20150706
  Receipt Date: 20150706
  Transmission Date: 20151125
  Serious: Yes (Hospitalization)
  Sender: FDA-Public Use
  Company Number: None

PATIENT
  Age: 68 Year
  Sex: Female
  Weight: 55 kg

DRUGS (1)
  1. INVOKANA [Suspect]
     Active Substance: CANAGLIFLOZIN
     Dosage: ONE, QD, ORAL
     Route: 048

REACTIONS (6)
  - Vomiting [None]
  - Nausea [None]
  - Ketoacidosis [None]
  - Acidosis [None]
  - Blood ketone body [None]
  - Hypovolaemia [None]

NARRATIVE: CASE EVENT DATE: 20150703
